FAERS Safety Report 18053011 (Version 5)
Quarter: 2021Q2

REPORT INFORMATION
  Report Type: Spontaneous
  Country: US (occurrence: US)
  Receive Date: 20200722
  Receipt Date: 20210517
  Transmission Date: 20210717
  Serious: No
  Sender: FDA-Public Use
  Company Number: US-HORIZON-TEP-0889-2020

PATIENT
  Age: 61 Year
  Sex: Female

DRUGS (2)
  1. TEPEZZA [Suspect]
     Active Substance: TEPROTUMUMAB-TRBW
     Indication: ENDOCRINE OPHTHALMOPATHY
     Dosage: UNK
     Route: 042
     Dates: start: 20200312, end: 202008
  2. SYNTHROID [Concomitant]
     Active Substance: LEVOTHYROXINE SODIUM

REACTIONS (14)
  - Creatinine renal clearance increased [Not Recovered/Not Resolved]
  - Proteinuria [Not Recovered/Not Resolved]
  - Palpitations [Unknown]
  - Swelling of eyelid [Unknown]
  - Fatigue [Unknown]
  - Muscle spasms [Recovering/Resolving]
  - Alopecia [Not Recovered/Not Resolved]
  - Blood uric acid increased [Unknown]
  - Dry skin [Unknown]
  - Asthenopia [Unknown]
  - Blood glucose increased [Recovered/Resolved]
  - Tension headache [Unknown]
  - Blood creatine increased [Unknown]
  - Ear pruritus [Unknown]

NARRATIVE: CASE EVENT DATE: 202003
